FAERS Safety Report 8004603-7 (Version None)
Quarter: 2011Q4

REPORT INFORMATION
  Report Type: 
  Country: None (occurrence: None)
  Receive Date: 20111223
  Receipt Date: 20111213
  Transmission Date: 20120403
  Serious: Yes (Life-Threatening, Other)
  Sender: FDA-Public Use
  Company Number: GB-PERRIGO-11GB010934

PATIENT
  Age: 69 Year
  Sex: Male

DRUGS (2)
  1. NAPROXEN SODIUM [Suspect]
     Indication: BACK PAIN
     Dosage: 500 MG, UNK
     Route: 048
     Dates: start: 20111201
  2. TAMSULOSIN HCL [Concomitant]
     Indication: PROSTATOMEGALY
     Dosage: UNK
     Route: 065

REACTIONS (6)
  - THROAT TIGHTNESS [None]
  - STRIDOR [None]
  - DYSPNOEA [None]
  - ANAPHYLACTIC REACTION [None]
  - AUTONOMIC NEUROPATHY [None]
  - URTICARIA [None]
